FAERS Safety Report 4960317-9 (Version None)
Quarter: 2006Q1

REPORT INFORMATION
  Report Type: 
  Country: None (occurrence: None)
  Receive Date: 20060328
  Receipt Date: 20060321
  Transmission Date: 20060701
  Serious: Yes (Life-Threatening)
  Sender: FDA-Public Use
  Company Number: 0603-169

PATIENT
  Sex: Male
  Weight: 2.5 kg

DRUGS (1)
  1. CUROSURF 3.0 ML/240MG [Suspect]
     Indication: RESPIRATORY DISTRESS
     Dosage: INTRATRACHEAL
     Route: 039
     Dates: start: 20060312

REACTIONS (8)
  - ASPHYXIA [None]
  - BRADYCARDIA [None]
  - CATHETER RELATED COMPLICATION [None]
  - NEONATAL CARDIAC FAILURE [None]
  - NEONATAL RESPIRATORY DISTRESS SYNDROME [None]
  - NEONATAL RESPIRATORY FAILURE [None]
  - OXYGEN SATURATION DECREASED [None]
  - PROCEDURAL COMPLICATION [None]
